FAERS Safety Report 12714052 (Version 1)
Quarter: 2016Q3

REPORT INFORMATION
  Report Type: Other
  Country: IL (occurrence: IL)
  Receive Date: 20160905
  Receipt Date: 20160905
  Transmission Date: 20161109
  Serious: Yes (Other)
  Sender: FDA-Public Use
  Company Number: IL-ACTELION-A-CH2016-141664

PATIENT
  Age: 3 Week
  Sex: Female

DRUGS (6)
  1. BOSENTAN. [Suspect]
     Active Substance: BOSENTAN
     Indication: PULMONARY ARTERIAL HYPERTENSION
     Route: 048
  2. NITRIC OXIDE. [Concomitant]
     Active Substance: NITRIC OXIDE
     Indication: PRODUCT USED FOR UNKNOWN INDICATION
  3. SILDENAFIL. [Concomitant]
     Active Substance: SILDENAFIL
     Indication: PRODUCT USED FOR UNKNOWN INDICATION
  4. EPOPROSTENOL. [Concomitant]
     Active Substance: EPOPROSTENOL
     Indication: PRODUCT USED FOR UNKNOWN INDICATION
     Route: 042
  5. PREDNISONE. [Concomitant]
     Active Substance: PREDNISONE
     Indication: PRODUCT USED FOR UNKNOWN INDICATION
     Dosage: 2 MG/KG, UNK
  6. OXYGEN. [Concomitant]
     Active Substance: OXYGEN
     Indication: PRODUCT USED FOR UNKNOWN INDICATION

REACTIONS (7)
  - Dyspnoea [Recovering/Resolving]
  - Pancreatitis [Unknown]
  - Respiratory distress [Recovering/Resolving]
  - Crepitations [Recovering/Resolving]
  - Concomitant disease aggravated [Recovering/Resolving]
  - Failure to thrive [Recovering/Resolving]
  - Developmental delay [Recovering/Resolving]
